FAERS Safety Report 16320198 (Version 1)
Quarter: 2019Q2

REPORT INFORMATION
  Report Type: Spontaneous
  Country: US (occurrence: US)
  Receive Date: 20190515
  Receipt Date: 20190515
  Transmission Date: 20190711
  Serious: Yes (Other)
  Sender: FDA-Public Use
  Company Number: None

PATIENT
  Age: 47 Year
  Sex: Female
  Weight: 64.8 kg

DRUGS (5)
  1. LEVOTHYROXINE SODIUM 112 MCG [Suspect]
     Active Substance: LEVOTHYROXINE SODIUM
     Indication: THYROID HORMONE REPLACEMENT THERAPY
     Dosage: ?          QUANTITY:1 TABLET(S);?
     Route: 048
     Dates: start: 20190425, end: 20190511
  2. LORATADINE. [Concomitant]
     Active Substance: LORATADINE
  3. LEVOTHYROXINE SODIUM 112 MCG [Suspect]
     Active Substance: LEVOTHYROXINE SODIUM
     Indication: THYROIDECTOMY
     Dosage: ?          QUANTITY:1 TABLET(S);?
     Route: 048
     Dates: start: 20190425, end: 20190511
  4. NASACORT [Concomitant]
     Active Substance: TRIAMCINOLONE ACETONIDE
  5. XOPENEX INHALER [Concomitant]

REACTIONS (15)
  - Tremor [None]
  - Drug hypersensitivity [None]
  - Respiratory tract oedema [None]
  - Dyspnoea [None]
  - Unevaluable event [None]
  - Dysphagia [None]
  - Pain [None]
  - Discomfort [None]
  - Heart rate increased [None]
  - Feeling hot [None]
  - Pruritus generalised [None]
  - Pharyngeal swelling [None]
  - Thyroxine free increased [None]
  - Flushing [None]
  - Allergic reaction to excipient [None]

NARRATIVE: CASE EVENT DATE: 20190511
